FAERS Safety Report 8867206 (Version 1)
Quarter: 2012Q4

REPORT INFORMATION
  Report Type: 
  Country: US (occurrence: US)
  Receive Date: 20121025
  Receipt Date: 20121025
  Transmission Date: 20130627
  Serious: No
  Sender: FDA-Public Use
  Company Number: US-AMGEN-USASP2012015501

PATIENT
  Age: 51 Year
  Sex: Female

DRUGS (11)
  1. ENBREL [Suspect]
     Indication: PRODUCT USED FOR UNKNOWN INDICATION
     Dosage: 50 mg, qwk
     Route: 058
  2. VITAMIN D /00107901/ [Concomitant]
     Dosage: UNK
  3. TRAMADOL HCL [Concomitant]
     Dosage: 300 mg, UNK
  4. ERGOCALCIFEROL [Concomitant]
     Dosage: UNK
  5. PREDNISONE [Concomitant]
     Dosage: 10 mg, UNK
  6. LISINOPRIL [Concomitant]
     Dosage: 10 mg, UNK
  7. FOLIC ACID [Concomitant]
     Dosage: 20 mg, UNK
  8. VITAMIN B C COMPLEX [Concomitant]
     Dosage: UNK
  9. SINGULAIR [Concomitant]
     Dosage: 5 mg, UNK
  10. FLORANEX [Concomitant]
     Dosage: UNK
  11. LEVOXYL [Concomitant]
     Dosage: 150 mug, UNK

REACTIONS (1)
  - Bronchitis [Unknown]
